FAERS Safety Report 15608882 (Version 2)
Quarter: 2020Q1

REPORT INFORMATION
  Report Type: Spontaneous
  Country: US (occurrence: US)
  Receive Date: 20181112
  Receipt Date: 20200113
  Transmission Date: 20200409
  Serious: No
  Sender: FDA-Public Use
  Company Number: US-SA-2018SA310180

PATIENT
  Age: 44 Year
  Sex: Female
  Weight: 57.6 kg

DRUGS (1)
  1. AUBAGIO [Suspect]
     Active Substance: TERIFLUNOMIDE
     Indication: MULTIPLE SCLEROSIS
     Dosage: 7 MG, BID
     Route: 048
     Dates: start: 20160503

REACTIONS (7)
  - Fall [Unknown]
  - Urticaria [Not Recovered/Not Resolved]
  - Product dose omission [Unknown]
  - Gait disturbance [Unknown]
  - Tremor [Unknown]
  - Food allergy [Unknown]
  - Inappropriate schedule of product administration [Unknown]

NARRATIVE: CASE EVENT DATE: 20191231
